FAERS Safety Report 10301696 (Version 1)
Quarter: 2014Q3

REPORT INFORMATION
  Report Type: Spontaneous
  Country: US (occurrence: None)
  Receive Date: 20140709
  Receipt Date: 20140709
  Transmission Date: 20150326
  Serious: Yes (Disabling)
  Sender: FDA-Public Use
  Company Number: None

PATIENT
  Age: 53 Year
  Sex: Female
  Weight: 54.89 kg

DRUGS (1)
  1. BOTOX [Suspect]
     Active Substance: ONABOTULINUMTOXINA
     Indication: SKIN WRINKLING
     Dates: start: 20140326, end: 20140403

REACTIONS (40)
  - Asthenia [None]
  - Dysphagia [None]
  - Alopecia [None]
  - Neck pain [None]
  - Palpitations [None]
  - Abdominal pain upper [None]
  - Gastrointestinal disorder [None]
  - Blepharospasm [None]
  - Middle insomnia [None]
  - Muscle tightness [None]
  - Dyspepsia [None]
  - Chest pain [None]
  - Balance disorder [None]
  - Dizziness [None]
  - Feeling abnormal [None]
  - Dry eye [None]
  - Musculoskeletal pain [None]
  - Abdominal discomfort [None]
  - Muscular weakness [None]
  - Gastrointestinal pain [None]
  - Motor dysfunction [None]
  - Vision blurred [None]
  - Oesophageal pain [None]
  - Weight decreased [None]
  - Discomfort [None]
  - Eye pain [None]
  - Malaise [None]
  - Fatigue [None]
  - Vomiting [None]
  - Dry mouth [None]
  - Oral disorder [None]
  - Communication disorder [None]
  - Decreased appetite [None]
  - Paraesthesia [None]
  - Hypoaesthesia [None]
  - Anxiety [None]
  - Diarrhoea [None]
  - Nausea [None]
  - Burning sensation [None]
  - Muscle twitching [None]

NARRATIVE: CASE EVENT DATE: 20140409
